FAERS Safety Report 22643651 (Version 1)
Quarter: 2023Q2

REPORT INFORMATION
  Report Type: Spontaneous
  Country: US (occurrence: US)
  Receive Date: 20230627
  Receipt Date: 20230627
  Transmission Date: 20230721
  Serious: Yes (Other)
  Sender: FDA-Public Use
  Company Number: US-JNJFOC-20230149244

PATIENT
  Sex: Female

DRUGS (7)
  1. TYLENOL EXTRA STRENGTH [Suspect]
     Active Substance: ACETAMINOPHEN
     Indication: Product used for unknown indication
     Route: 064
     Dates: start: 200808, end: 200904
  2. EXTRA STRENGTH ACETAMINOPHEN [Suspect]
     Active Substance: ACETAMINOPHEN
     Indication: Headache
     Dosage: TOTAL 120 UNITS CAPSULE AND TABLETS
     Route: 064
     Dates: start: 200807
  3. EXTRA STRENGTH ACETAMINOPHEN [Suspect]
     Active Substance: ACETAMINOPHEN
     Indication: Back pain
  4. EXTRA STRENGTH ACETAMINOPHEN [Suspect]
     Active Substance: ACETAMINOPHEN
     Indication: Ligament pain
  5. EXTRA STRENGTH ACETAMINOPHEN [Suspect]
     Active Substance: ACETAMINOPHEN
     Indication: Headache
     Dosage: TOTAL 120 UNITS CAPSULE AND TABLETS
     Route: 064
     Dates: start: 200807
  6. EXTRA STRENGTH ACETAMINOPHEN [Suspect]
     Active Substance: ACETAMINOPHEN
     Indication: Back pain
  7. EXTRA STRENGTH ACETAMINOPHEN [Suspect]
     Active Substance: ACETAMINOPHEN
     Indication: Ligament pain

REACTIONS (3)
  - Autism spectrum disorder [Unknown]
  - Foetal exposure during pregnancy [Unknown]
  - Attention deficit hyperactivity disorder [Unknown]

NARRATIVE: CASE EVENT DATE: 20130101
